FAERS Safety Report 21259576 (Version 2)
Quarter: 2022Q3

REPORT INFORMATION
  Report Type: Report from Study
  Country: MX (occurrence: MX)
  Receive Date: 20220826
  Receipt Date: 20220909
  Transmission Date: 20221026
  Serious: Yes (Other)
  Sender: FDA-Public Use
  Company Number: MX-NOVARTISPH-NVSC2022MX191559

PATIENT
  Age: 66 Year
  Sex: Male
  Weight: 79 kg

DRUGS (4)
  1. HYDROCHLOROTHIAZIDE\VALSARTAN [Suspect]
     Active Substance: HYDROCHLOROTHIAZIDE\VALSARTAN
     Indication: Hypertension
     Dosage: 1 DOSAGE FORM (160/25MG) (STARTED 20 YEARS AGO, STOPPED 5 YEARS AGO))
     Route: 048
  2. HYDROCHLOROTHIAZIDE\VALSARTAN [Suspect]
     Active Substance: HYDROCHLOROTHIAZIDE\VALSARTAN
     Dosage: 0.5 DOSAGE FORM, QD (160/12.5MG) (STARTED 5 YEARS AGO)
     Route: 048
  3. HYDROCHLOROTHIAZIDE\VALSARTAN [Suspect]
     Active Substance: HYDROCHLOROTHIAZIDE\VALSARTAN
     Dosage: 0.5 DOSAGE FORM, QD (160/25MG) (STARTED 5 YEARS AGO)
     Route: 048
     Dates: end: 20220827
  4. HYDROCHLOROTHIAZIDE\VALSARTAN [Suspect]
     Active Substance: HYDROCHLOROTHIAZIDE\VALSARTAN
     Dosage: 0.5 DOSAGE FORM, QD (80/12.5MG)
     Route: 048
     Dates: start: 20220828

REACTIONS (3)
  - Aortic stenosis [Recovered/Resolved]
  - Blood pressure decreased [Recovered/Resolved]
  - Wrong technique in product usage process [Not Recovered/Not Resolved]

NARRATIVE: CASE EVENT DATE: 20220617
